FAERS Safety Report 7942315-6 (Version None)
Quarter: 2011Q4

REPORT INFORMATION
  Report Type: 
  Country: None (occurrence: None)
  Receive Date: 20111122
  Receipt Date: 20110719
  Transmission Date: 20120403
  Serious: Yes (Hospitalization)
  Sender: FDA-Public Use
  Company Number: PHHY2011US58752

PATIENT
  Sex: Male

DRUGS (18)
  1. CALCIFEROL-VITD (ERGOCALCIFEROL) [Concomitant]
  2. RAPAFLO [Concomitant]
  3. ASPIRIN [Concomitant]
  4. MORPHINE SULFATE INJ [Concomitant]
  5. BACLOFEN [Concomitant]
  6. PROVIGIL [Concomitant]
  7. GILENYA [Suspect]
     Indication: MULTIPLE SCLEROSIS
     Dosage: 0.5 MG, QD, ORAL
     Route: 048
  8. DURAGESIC-100 [Concomitant]
  9. FAMPRIDINE (FAMPRIDINE) [Concomitant]
  10. ZANAFLEX [Concomitant]
  11. NAPROXEN [Concomitant]
  12. FISH OIL (FISH OIL) [Concomitant]
  13. ATILEN (SALICYLATES) [Concomitant]
  14. CIALIS (TAFDALAFIL) [Concomitant]
  15. OSCAL (CALCIUM CARBONATE) [Concomitant]
  16. FLOMAX [Concomitant]
  17. HYDROCHLOROTHIAZIDE [Concomitant]
  18. AMITRIPTYLINE HCL [Concomitant]

REACTIONS (5)
  - MULTIPLE SCLEROSIS RELAPSE [None]
  - BACK PAIN [None]
  - ASTHENIA [None]
  - FATIGUE [None]
  - LIVER FUNCTION TEST ABNORMAL [None]
